FAERS Safety Report 8285351-5 (Version None)
Quarter: 2012Q2

REPORT INFORMATION
  Report Type: 
  Country: None (occurrence: None)
  Receive Date: 20120413
  Receipt Date: 20120409
  Transmission Date: 20120825
  Serious: No
  Sender: FDA-Public Use
  Company Number: US-PFIZER INC-2012088485

PATIENT
  Sex: Female
  Weight: 54.42 kg

DRUGS (6)
  1. NEURONTIN [Suspect]
     Dosage: 300 MG
     Dates: start: 20120101, end: 20120324
  2. SYNTHROID [Concomitant]
     Indication: HYPOTHYROIDISM
     Dosage: 112 UG, DAILY
  3. FENTANYL-100 [Suspect]
     Indication: NEURALGIA
     Dosage: UNK
     Dates: end: 20120101
  4. NEURONTIN [Suspect]
     Indication: NEUROPATHY PERIPHERAL
     Dosage: 100 MG, DAILY
     Dates: start: 20120120, end: 20120101
  5. NUROMAX [Concomitant]
     Indication: RESTLESS LEGS SYNDROME
     Dosage: UNK, DAILY
  6. NEURONTIN [Suspect]
     Dosage: 300 MG, 2X/DAY
     Dates: start: 20120101, end: 20120101

REACTIONS (6)
  - PARAESTHESIA [None]
  - VITAMIN D DECREASED [None]
  - NEURALGIA [None]
  - VITAMIN A DECREASED [None]
  - HYPOAESTHESIA [None]
  - MALAISE [None]
